FAERS Safety Report 13018903 (Version 3)
Quarter: 2017Q1

REPORT INFORMATION
  Report Type: Spontaneous
  Country: US (occurrence: US)
  Receive Date: 20161212
  Receipt Date: 20170210
  Transmission Date: 20170428
  Serious: No
  Sender: FDA-Public Use
  Company Number: US-INCYTE CORPORATION-2016IN007694

PATIENT
  Age: 87 Year
  Sex: Male

DRUGS (3)
  1. JAKAFI [Suspect]
     Active Substance: RUXOLITINIB
     Dosage: 20 MG, BID
     Route: 048
     Dates: start: 20170117
  2. JAKAFI [Suspect]
     Active Substance: RUXOLITINIB
     Dosage: 5 MG, BID
     Route: 048
  3. JAKAFI [Suspect]
     Active Substance: RUXOLITINIB
     Indication: MYELOFIBROSIS
     Dosage: 20 MG, BID (TWICE DAILY)
     Route: 048
     Dates: start: 20161015, end: 20161122

REACTIONS (3)
  - Drug dose omission [Unknown]
  - Anaemia [Unknown]
  - Blood count abnormal [Unknown]

NARRATIVE: CASE EVENT DATE: 20161122
